FAERS Safety Report 10194244 (Version 1)
Quarter: 2014Q2

REPORT INFORMATION
  Report Type: Spontaneous
  Country: US (occurrence: US)
  Receive Date: 20140525
  Receipt Date: 20140525
  Transmission Date: 20141212
  Serious: No
  Sender: FDA-Public Use
  Company Number: US-009507513-1405USA001895

PATIENT
  Sex: Female

DRUGS (4)
  1. DULERA [Suspect]
     Indication: ASTHMA
     Dosage: 2 PUFFS TWICE DAILY
     Route: 055
     Dates: start: 2012
  2. DULERA [Suspect]
     Dosage: 1 PUFFS TWICE DAILY
     Route: 055
  3. DULERA [Suspect]
     Dosage: 2 PUFFS TWICE DAILY
     Route: 055
  4. MONTELUKAST SODIUM [Concomitant]

REACTIONS (4)
  - Asthma [Recovered/Resolved]
  - Drug dose omission [Unknown]
  - Product quality issue [Unknown]
  - Underdose [Unknown]
